FAERS Safety Report 6152711-8 (Version None)
Quarter: 2009Q2

REPORT INFORMATION
  Report Type: 
  Country: None (occurrence: None)
  Receive Date: 20090413
  Receipt Date: 20090401
  Transmission Date: 20091009
  Serious: Yes (Hospitalization)
  Sender: FDA-Public Use
  Company Number: US-CELGENEUS-163-CCAZA-09011349

PATIENT
  Sex: Female
  Weight: 46 kg

DRUGS (30)
  1. AZACITIDINE [Suspect]
     Indication: MYELODYSPLASTIC SYNDROME
     Route: 058
     Dates: start: 20090113, end: 20090120
  2. LEVAQUIN [Concomitant]
     Indication: ORAL INFECTION
     Route: 048
     Dates: start: 20090114
  3. ACYCLOVIR [Concomitant]
     Indication: ORAL INFECTION
     Route: 048
     Dates: start: 20090114
  4. TYLENOL [Concomitant]
     Indication: TRANSFUSION
     Route: 048
     Dates: start: 20090122
  5. TYLENOL [Concomitant]
     Indication: PROPHYLAXIS
     Route: 048
     Dates: start: 20090114, end: 20090118
  6. ATIVAN [Concomitant]
     Route: 051
     Dates: start: 20090121, end: 20090121
  7. ATIVAN [Concomitant]
     Route: 051
     Dates: start: 20090112, end: 20090112
  8. BENADRYL [Concomitant]
     Indication: PROPHYLAXIS
     Route: 048
     Dates: start: 20090122
  9. BENADRYL [Concomitant]
     Indication: PRURITUS
     Route: 051
     Dates: start: 20090124
  10. LASIX [Concomitant]
     Indication: PROPHYLAXIS
     Route: 051
     Dates: start: 20090120, end: 20090121
  11. CIPROFLOXACIN HCL [Concomitant]
     Indication: ORAL INFECTION
     Route: 048
     Dates: start: 20090115
  12. DIFLUCAN [Concomitant]
     Indication: INFECTION
     Route: 048
     Dates: start: 20090124
  13. POTASSIUM PHOSPHATES [Concomitant]
     Indication: DRUG USE FOR UNKNOWN INDICATION
     Route: 051
     Dates: start: 20090124
  14. PHENERGAN [Concomitant]
     Indication: NAUSEA
     Route: 048
     Dates: start: 20090124
  15. AMBIEN [Concomitant]
     Indication: INSOMNIA
     Route: 048
     Dates: start: 20090124
  16. SODIUM CHLORIDE [Concomitant]
     Indication: PROPHYLAXIS AGAINST DEHYDRATION
     Route: 051
     Dates: start: 20090124, end: 20090127
  17. MAGNESIUM SULFATE [Concomitant]
     Route: 051
     Dates: start: 20090124
  18. MAGNESIUM TAB SR [Concomitant]
     Route: 048
     Dates: start: 20090124
  19. OXYCODONE HCL [Concomitant]
     Indication: PAIN
     Route: 048
     Dates: start: 20090124
  20. K-DUR [Concomitant]
     Route: 048
     Dates: start: 20090124
  21. MAALOX [Concomitant]
     Indication: DYSPEPSIA
     Route: 048
     Dates: start: 20090124
  22. AMICAR [Concomitant]
     Indication: DRUG USE FOR UNKNOWN INDICATION
     Route: 048
     Dates: start: 20090122
  23. IMMUNE GLOBULIN INTRAVENOUS (HUMAN) [Concomitant]
     Route: 051
     Dates: start: 20090126, end: 20090128
  24. CLARITIN [Concomitant]
     Route: 048
     Dates: start: 20081124
  25. ASTELIN [Concomitant]
     Route: 045
     Dates: start: 20081124
  26. CITRACAL [Concomitant]
     Route: 048
     Dates: start: 20081124
  27. MIRALAX [Concomitant]
     Indication: CONSTIPATION
     Route: 048
     Dates: start: 20081124
  28. CULTURELLE [Concomitant]
     Indication: CONSTIPATION
     Route: 048
     Dates: start: 20081124
  29. FOLTX [Concomitant]
     Indication: MALABSORPTION
     Route: 048
     Dates: start: 20081124
  30. VITAMINS [Concomitant]
     Indication: ROUTINE HEALTH MAINTENANCE
     Route: 048
     Dates: start: 20081124

REACTIONS (3)
  - HAEMORRHAGE [None]
  - HYPOTENSION [None]
  - THROMBOCYTOPENIA [None]
